FAERS Safety Report 21852014 (Version 2)
Quarter: 2024Q2

REPORT INFORMATION
  Report Type: Report from Study
  Country: HR (occurrence: HR)
  Receive Date: 20230112
  Receipt Date: 20240628
  Transmission Date: 20240715
  Serious: Yes (Other)
  Sender: FDA-Public Use
  Company Number: HR-CELLTRION INC.-2023HR000180

PATIENT

DRUGS (17)
  1. TRASTUZUMAB [Suspect]
     Active Substance: TRASTUZUMAB
     Indication: HER2 positive breast cancer
     Dosage: 6 CYCLES EVERY 3 WEEKS
  2. TRASTUZUMAB [Suspect]
     Active Substance: TRASTUZUMAB
     Indication: Product used for unknown indication
     Dosage: ON DAY 1; EVERY 3 WEEKS FOR 9 CYCLES.
  3. TRASTUZUMAB [Suspect]
     Active Substance: TRASTUZUMAB
     Dosage: TCPH PROTOCOL: 6 CYCLES OF DOCETAXEL + CARBOPLATIN WITH PERTUZUMAB AND TRASTUZUMAB, EVERY 3 WEEKS.
     Dates: start: 20200101, end: 20211231
  4. TRASTUZUMAB [Suspect]
     Active Substance: TRASTUZUMAB
     Dosage: PROTOCOL ACCORDING TO THE TRAIN2 STUDY: CARBOPLATIN ON DAY 1, PACLITAXEL ON DAYS 1 AND 8, PERTUZUMAB
     Dates: start: 20200101, end: 20211231
  5. CARBOPLATIN [Suspect]
     Active Substance: CARBOPLATIN
     Indication: HER2 positive breast cancer
     Dosage: 6 CYCLES EVERY 3 WEEKS
  6. CARBOPLATIN [Suspect]
     Active Substance: CARBOPLATIN
     Indication: Product used for unknown indication
     Dosage: FOR 9 CYCLES EVERY 3 WEEKS
  7. CARBOPLATIN [Suspect]
     Active Substance: CARBOPLATIN
     Dosage: ADDITIONAL INFORMATION ON DRUG (FREE TEXT): NON-ANTHRACYCLINE REGIMEN
  8. CARBOPLATIN [Suspect]
     Active Substance: CARBOPLATIN
     Dosage: TCPH PROTOCOL: 6 CYCLES OF DOCETAXEL + CARBOPLATIN WITH PERTUZUMAB AND TRASTUZUMAB, EVERY 3 WEEKS
     Dates: start: 20200101, end: 20211231
  9. CARBOPLATIN [Suspect]
     Active Substance: CARBOPLATIN
     Dosage: PROTOCOL ACCORDING TO THE TRAIN2 STUDY: CARBOPLATIN ON DAY 1, PACLITAXEL ON DAYS 1 AND 8, PERTUZUMAB
     Dates: start: 20200101, end: 20211231
  10. PACLITAXEL [Suspect]
     Active Substance: PACLITAXEL
     Indication: HER2 positive breast cancer
     Dosage: ON DAY 1 AND 8 FOR 9 CYCLES EVERY 3 WEEKS
  11. PACLITAXEL [Suspect]
     Active Substance: PACLITAXEL
     Dosage: PROTOCOL ACCORDING TO THE TRAIN2 STUDY: CARBOPLATIN ON DAY 1, PACLITAXEL ON DAYS 1 AND 8, PERTUZUMAB
     Dates: start: 20200101, end: 20211231
  12. DOCETAXEL [Suspect]
     Active Substance: DOCETAXEL\DOCETAXEL ANHYDROUS
     Indication: HER2 positive breast cancer
     Dosage: 6 CYCLES EVERY 3 WEEKS
  13. DOCETAXEL [Suspect]
     Active Substance: DOCETAXEL\DOCETAXEL ANHYDROUS
     Dosage: TCPH PROTOCOL: 6 CYCLES OF DOCETAXEL + CARBOPLATIN WITH PERTUZUMAB AND TRASTUZUMAB, EVERY 3 WEEKS
     Dates: start: 20200101, end: 20211231
  14. PERTUZUMAB [Suspect]
     Active Substance: PERTUZUMAB
     Indication: HER2 positive breast cancer
     Dosage: 6 CYCLES EVERY 3 WEEKS
  15. PERTUZUMAB [Suspect]
     Active Substance: PERTUZUMAB
     Indication: Product used for unknown indication
     Dosage: ON DAY 1 ; EVERY 3 WEEKS FOR 9 CYCLES
  16. PERTUZUMAB [Suspect]
     Active Substance: PERTUZUMAB
     Dosage: TCPH PROTOCOL: 6 CYCLES OF DOCETAXEL + CARBOPLATIN WITH PERTUZUMAB AND TRASTUZUMAB, EVERY 3 WEEKS
     Dates: start: 20200101, end: 20211231
  17. PERTUZUMAB [Suspect]
     Active Substance: PERTUZUMAB
     Dosage: PROTOCOL ACCORDING TO THE TRAIN2 STUDY: CARBOPLATIN ON DAY 1, PACLITAXEL ON DAYS 1 AND 8, PERTUZUMAB
     Dates: start: 20200101, end: 20211231

REACTIONS (1)
  - Polyneuropathy [Unknown]
